FAERS Safety Report 9122022 (Version 4)
Quarter: 2013Q2

REPORT INFORMATION
  Report Type: Report from Study
  Country: US (occurrence: US)
  Receive Date: 20130227
  Receipt Date: 20130523
  Transmission Date: 20140414
  Serious: Yes (Other)
  Sender: FDA-Public Use
  Company Number: PHEH2013US004241

PATIENT
  Sex: Female

DRUGS (22)
  1. GLEEVEC [Suspect]
     Indication: CHRONIC MYELOID LEUKAEMIA
     Dosage: 400 MG, DAILY
     Route: 048
     Dates: start: 20130209
  2. GLEEVEC [Suspect]
     Dosage: 200 MG, UNK
     Route: 048
  3. GLEEVEC [Suspect]
     Dosage: 400 MG, DAILY
     Route: 048
     Dates: start: 201302
  4. KLONOPIN [Concomitant]
     Dosage: UNK UKN, UNK
  5. CENTRUM [Concomitant]
     Dosage: UNK UKN, UNK
  6. SYNTHROID [Concomitant]
     Dosage: UNK UKN, UNK
  7. TRAMADOL [Concomitant]
     Dosage: UNK UKN, UNK
  8. BACLOFEN [Concomitant]
     Dosage: UNK UKN, UNK
  9. NEXIUM [Concomitant]
     Dosage: UNK UKN, UNK
  10. CYANOCOBALAMIN [Concomitant]
     Dosage: UNK UKN, UNK
  11. ASPIRIN [Concomitant]
     Dosage: UNK UKN, UNK
  12. CLONAZEPAN [Concomitant]
     Dosage: UNK UKN, UNK
  13. ECOTRIN [Concomitant]
     Dosage: UNK UKN, UNK
  14. ZOLPIDEM [Concomitant]
     Dosage: UNK UKN, UNK
  15. MISOPROSTOL [Concomitant]
     Dosage: UNK UKN, UNK
  16. MVI [Concomitant]
     Dosage: UNK UKN, UNK
  17. DOCQLACE [Concomitant]
  18. VITAMIN D3 [Concomitant]
     Dosage: UNK UKN, UNK
  19. ASPIRIN (E.C.) [Concomitant]
     Dosage: UNK UKN, UNK
  20. HYDROCODONE [Concomitant]
     Dosage: UNK UKN, UNK
  21. FLUTICASONE [Concomitant]
     Dosage: UNK UKN, UNK
  22. AZASITE [Concomitant]
     Dosage: UNK UKN, UNK

REACTIONS (10)
  - Irritable bowel syndrome [Unknown]
  - Abdominal distension [Unknown]
  - Abdominal tenderness [Unknown]
  - Nausea [Unknown]
  - Hypoaesthesia [Unknown]
  - Fluid retention [Unknown]
  - Weight increased [Unknown]
  - Paraesthesia [Unknown]
  - Abdominal pain upper [Unknown]
  - Malaise [Unknown]
